FAERS Safety Report 5233406-1 (Version None)
Quarter: 2007Q1

REPORT INFORMATION
  Report Type: 
  Country: None (occurrence: None)
  Receive Date: 20070206
  Receipt Date: 20070123
  Transmission Date: 20070707
  Serious: Yes (Death, Other)
  Sender: FDA-Public Use
  Company Number: 2007RR-05505

PATIENT
  Age: 46 Year
  Sex: Male

DRUGS (1)
  1. METFORMIN HCL [Suspect]
     Indication: DIABETES MELLITUS NON-INSULIN-DEPENDENT
     Dosage: 1 G, BID, ORAL
     Route: 048
     Dates: start: 20040101

REACTIONS (2)
  - LACTIC ACIDOSIS [None]
  - PERICARDIAL EFFUSION [None]
